FAERS Safety Report 10223734 (Version 1)
Quarter: 2014Q2

REPORT INFORMATION
  Report Type: Spontaneous
  Country: US (occurrence: None)
  Receive Date: 20140605
  Receipt Date: 20140605
  Transmission Date: 20141212
  Serious: Yes (Hospitalization)
  Sender: FDA-Public Use
  Company Number: FK201402093

PATIENT
  Age: 53 Year
  Sex: Female

DRUGS (6)
  1. FUROSEMIDE (MANUFACTURER UNKNOWN) (FUROSEMIDE) (FUROSEMIDE) [Suspect]
     Indication: PRODUCT USED FOR UNKNOWN INDICATION
  2. LISINOPRIL (LISINOPRIL) [Suspect]
     Indication: PRODUCT USED FOR UNKNOWN INDICATION
  3. OLMESARTAN (OLMESARTAN) (TABLET) (OLMESARTAN) [Suspect]
     Indication: PRODUCT USED FOR UNKNOWN INDICATION
  4. HYDROCHLOROTIAZIDE [Suspect]
     Indication: PRODUCT USED FOR UNKNOWN INDICATION
  5. CELECOXIB (CELECOXIB) [Suspect]
     Indication: PRODUCT USED FOR UNKNOWN INDICATION
     Dosage: AT 1000H THE DAY OF THE SURGERY
  6. HYDROMORPHONE (HYDROMORPHONE) [Concomitant]

REACTIONS (3)
  - Renal impairment [None]
  - Renal failure [None]
  - Drug interaction [None]
